FAERS Safety Report 16040147 (Version 1)
Quarter: 2019Q2

REPORT INFORMATION
  Report Type: Spontaneous
  Country: US (occurrence: US)
  Receive Date: 20190305
  Receipt Date: 20190305
  Transmission Date: 20190711
  Serious: Yes (Other)
  Sender: FDA-Public Use
  Company Number: None

PATIENT
  Age: 56 Year
  Sex: Female
  Weight: 55.35 kg

DRUGS (1)
  1. CYMBALTA [Suspect]
     Active Substance: DULOXETINE HYDROCHLORIDE
     Indication: DEPRESSION
     Dosage: ?          QUANTITY:1 CAPSULE(S);?
     Route: 048
     Dates: start: 20120911, end: 20190210

REACTIONS (5)
  - Gastrointestinal tract irritation [None]
  - Withdrawal syndrome [None]
  - Hyperhidrosis [None]
  - Headache [None]
  - Hallucination, auditory [None]

NARRATIVE: CASE EVENT DATE: 20190211
